FAERS Safety Report 23500026 (Version 1)
Quarter: 2024Q1

REPORT INFORMATION
  Report Type: Spontaneous
  Country: CN (occurrence: CN)
  Receive Date: 20240208
  Receipt Date: 20240208
  Transmission Date: 20240410
  Serious: Yes (Death)
  Sender: FDA-Public Use
  Company Number: CN-009507513-2402CHN002588

PATIENT
  Age: 46 Year
  Sex: Male

DRUGS (6)
  1. IMIPENEM AND CILASTATIN [Suspect]
     Active Substance: CILASTATIN SODIUM\IMIPENEM
     Indication: Pneumonia bacterial
     Dosage: 0.5 GRAM; FREQUENCY UNKNOWN
     Route: 041
  2. IMIPENEM AND CILASTATIN [Suspect]
     Active Substance: CILASTATIN SODIUM\IMIPENEM
     Indication: Infection prophylaxis
  3. CEFOXITIN SODIUM [Concomitant]
     Active Substance: CEFOXITIN SODIUM
     Indication: Pneumonia bacterial
     Dosage: 2 GRAM, BID
     Route: 041
  4. CEFOXITIN SODIUM [Concomitant]
     Active Substance: CEFOXITIN SODIUM
     Indication: Infection prophylaxis
  5. CEFODIZIME SODIUM [Concomitant]
     Active Substance: CEFODIZIME SODIUM
     Indication: Pneumonia bacterial
     Dosage: 1 GRAM; FREQUENCY NOT REPORTED
     Route: 041
  6. CEFODIZIME SODIUM [Concomitant]
     Active Substance: CEFODIZIME SODIUM
     Indication: Infection prophylaxis

REACTIONS (1)
  - Drug ineffective [Fatal]
